FAERS Safety Report 18981043 (Version 1)
Quarter: 2021Q1

REPORT INFORMATION
  Report Type: Other
  Country: US (occurrence: US)
  Receive Date: 20210308
  Receipt Date: 20210308
  Transmission Date: 20210420
  Serious: No
  Sender: FDA-Public Use
  Company Number: US-FAGRON STERILE SERVICES-2107701

PATIENT
  Age: 79 Year
  Sex: Female

DRUGS (1)
  1. LIDOCAINE 1%/ PHENYLEPHRINE 1.5% IN BSS PF/SF SOLUTION FOR INJECTION [Suspect]
     Active Substance: LIDOCAINE\PHENYLEPHRINE

REACTIONS (1)
  - Endophthalmitis [None]
